FAERS Safety Report 14305413 (Version 1)
Quarter: 2017Q4

REPORT INFORMATION
  Report Type: Spontaneous
  Country: FR (occurrence: FR)
  Receive Date: 20171219
  Receipt Date: 20171219
  Transmission Date: 20180321
  Serious: Yes (Hospitalization, Other)
  Sender: FDA-Public Use
  Company Number: FR-OTSUKA-DJ20090315

PATIENT
  Age: 37 Year
  Sex: Male

DRUGS (7)
  1. HALDOL DECANOATE [Suspect]
     Active Substance: HALOPERIDOL DECANOATE
     Indication: PRODUCT USED FOR UNKNOWN INDICATION
     Dosage: UNK,STARTED AS PER OS AND CHANGED TO IV
     Route: 042
     Dates: end: 20080928
  2. LOXAPAC [Suspect]
     Active Substance: LOXAPINE SUCCINATE
     Indication: PRODUCT USED FOR UNKNOWN INDICATION
     Dosage: 50 MG, UNK
     Route: 065
     Dates: start: 200706, end: 20080910
  3. XATRAL [Concomitant]
     Active Substance: ALFUZOSIN
     Indication: PRODUCT USED FOR UNKNOWN INDICATION
     Dosage: UNK
     Route: 065
  4. ABILIFY [Suspect]
     Active Substance: ARIPIPRAZOLE
     Indication: PRODUCT USED FOR UNKNOWN INDICATION
     Dosage: 5 MG, UNK
     Route: 065
     Dates: start: 20080610
  5. ABILIFY [Suspect]
     Active Substance: ARIPIPRAZOLE
     Route: 065
     Dates: start: 20080826
  6. LEPTICUR [Suspect]
     Active Substance: TROPATEPINE HYDROCHLORIDE
     Indication: PRODUCT USED FOR UNKNOWN INDICATION
     Dosage: 10 MG, UNK
     Route: 065
     Dates: start: 200706, end: 20081007
  7. TEGRETOL [Suspect]
     Active Substance: CARBAMAZEPINE
     Indication: PRODUCT USED FOR UNKNOWN INDICATION
     Dosage: 400 MG, QD
     Route: 065
     Dates: start: 20081218

REACTIONS (19)
  - Hallucinations, mixed [Not Recovered/Not Resolved]
  - Respiratory distress [Unknown]
  - Dyskinesia [Not Recovered/Not Resolved]
  - Dysphagia [Unknown]
  - Somnolence [Unknown]
  - Extrapyramidal disorder [Unknown]
  - Coordination abnormal [Unknown]
  - Cachexia [Unknown]
  - Seizure [Unknown]
  - Urinary retention [Unknown]
  - Hypotonia [Not Recovered/Not Resolved]
  - Pyrexia [Unknown]
  - Rhabdomyolysis [Unknown]
  - Tremor [Unknown]
  - Agitation [Unknown]
  - Hyperthermia [Unknown]
  - Increased bronchial secretion [Unknown]
  - Salivary hypersecretion [Recovering/Resolving]
  - Catatonia [Unknown]

NARRATIVE: CASE EVENT DATE: 200809
